FAERS Safety Report 6534028-2 (Version None)
Quarter: 2010Q1

REPORT INFORMATION
  Report Type: 
  Country: None (occurrence: None)
  Receive Date: 20100112
  Receipt Date: 20100105
  Transmission Date: 20100710
  Serious: Yes (Other)
  Sender: FDA-Public Use
  Company Number: US-JNJFOC-20100101445

PATIENT
  Sex: Female
  Weight: 117.94 kg

DRUGS (10)
  1. REMICADE [Suspect]
     Indication: ANKYLOSING SPONDYLITIS
     Route: 042
  2. REMICADE [Suspect]
     Indication: RHEUMATOID ARTHRITIS
     Route: 042
  3. TOPROL-XL [Concomitant]
     Indication: BLOOD PRESSURE
  4. SYNTHROID [Concomitant]
     Indication: THYROIDECTOMY
  5. NEXIUM [Concomitant]
  6. ZOCOR [Concomitant]
  7. ASPIRIN [Concomitant]
  8. LASIX [Concomitant]
  9. DETROL [Concomitant]
  10. PREVACID [Concomitant]

REACTIONS (6)
  - BRONCHITIS [None]
  - DEAFNESS [None]
  - EAR INFECTION [None]
  - HERPES ZOSTER [None]
  - INGROWING NAIL [None]
  - LOCALISED INFECTION [None]
